FAERS Safety Report 8560271-7 (Version None)
Quarter: 2012Q3

REPORT INFORMATION
  Report Type: 
  Country: None (occurrence: None)
  Receive Date: 20120802
  Receipt Date: 20120725
  Transmission Date: 20120928
  Serious: Yes (Hospitalization, Disabling, Other)
  Sender: FDA-Public Use
  Company Number: US-009507513-1202USA02453

PATIENT

DRUGS (8)
  1. FOSAMAX [Suspect]
     Dosage: 70 MG, UNK
     Route: 048
     Dates: start: 20010115
  2. RECLAST [Suspect]
     Indication: OSTEOPENIA
  3. FOSAMAX [Suspect]
     Indication: OSTEOPOROSIS
     Dosage: 10 MG, UNK
     Route: 048
     Dates: start: 19960101, end: 20001215
  4. BONIVA [Suspect]
     Indication: OSTEOPENIA
  5. RECLAST [Suspect]
     Indication: OSTEOPOROSIS
  6. ACTONEL [Suspect]
     Indication: OSTEOPENIA
  7. BONIVA [Suspect]
     Indication: OSTEOPOROSIS
  8. ACTONEL [Suspect]
     Indication: OSTEOPOROSIS

REACTIONS (62)
  - FEMUR FRACTURE [None]
  - HYPERPARATHYROIDISM [None]
  - DEVICE FAILURE [None]
  - CARPAL TUNNEL SYNDROME [None]
  - MIGRAINE [None]
  - DYSPNOEA [None]
  - ALOPECIA [None]
  - BENIGN BONE NEOPLASM [None]
  - LIMB ASYMMETRY [None]
  - VERTEBRAL FORAMINAL STENOSIS [None]
  - BALANCE DISORDER [None]
  - GASTROOESOPHAGEAL REFLUX DISEASE [None]
  - BLOOD POTASSIUM DECREASED [None]
  - STIFF PERSON SYNDROME [None]
  - NEUROPATHY PERIPHERAL [None]
  - SLEEP APNOEA SYNDROME [None]
  - CONNECTIVE TISSUE DISORDER [None]
  - PROCEDURAL HYPOTENSION [None]
  - CERVICOBRACHIAL SYNDROME [None]
  - JOINT SWELLING [None]
  - BLADDER DISORDER [None]
  - FRACTURE NONUNION [None]
  - SPINAL OSTEOARTHRITIS [None]
  - THORACIC VERTEBRAL FRACTURE [None]
  - VERTIGO [None]
  - CHEST PAIN [None]
  - BUNION [None]
  - ARTHROPATHY [None]
  - CATARACT [None]
  - TEMPERATURE INTOLERANCE [None]
  - PAIN IN EXTREMITY [None]
  - EPICONDYLITIS [None]
  - ANAEMIA [None]
  - CARDIAC DISORDER [None]
  - FUNCTIONAL GASTROINTESTINAL DISORDER [None]
  - PARATHYROID DISORDER [None]
  - DRY MOUTH [None]
  - ARTHRALGIA [None]
  - PERONEAL NERVE PALSY [None]
  - LOW TURNOVER OSTEOPATHY [None]
  - OSTEOARTHRITIS [None]
  - GALLBLADDER DISORDER [None]
  - OSTEOPENIA [None]
  - ANAEMIA POSTOPERATIVE [None]
  - FRACTURE DELAYED UNION [None]
  - DRY EYE [None]
  - LUMBAR RADICULOPATHY [None]
  - GASTROINTESTINAL HAEMORRHAGE [None]
  - INTERVERTEBRAL DISC DEGENERATION [None]
  - GAIT DISTURBANCE [None]
  - DIARRHOEA [None]
  - NECROSIS [None]
  - CHONDROCALCINOSIS PYROPHOSPHATE [None]
  - FALL [None]
  - GLAUCOMA [None]
  - ABDOMINAL PAIN UPPER [None]
  - NEUROGENIC BLADDER [None]
  - SPINAL COLUMN STENOSIS [None]
  - WEIGHT DECREASED [None]
  - TINNITUS [None]
  - GROIN PAIN [None]
  - URINARY TRACT INFECTION [None]
